FAERS Safety Report 16660120 (Version 2)
Quarter: 2019Q3

REPORT INFORMATION
  Report Type: Spontaneous
  Country: CA (occurrence: CA)
  Receive Date: 20190802
  Receipt Date: 20190808
  Transmission Date: 20191004
  Serious: Yes (Other)
  Sender: FDA-Public Use
  Company Number: CA-ORION CORPORATION ORION PHARMA-TREX2019-2594

PATIENT
  Age: 62 Year
  Sex: Female

DRUGS (27)
  1. PANTOLOC [Concomitant]
     Active Substance: PANTOPRAZOLE SODIUM
     Route: 065
  2. LACRI-LUBE [Concomitant]
     Route: 065
  3. METHOTREXATE (TRADE NAME UNKNOWN) [Suspect]
     Active Substance: METHOTREXATE
     Indication: PRODUCT USED FOR UNKNOWN INDICATION
     Route: 065
  4. ENBREL [Suspect]
     Active Substance: ETANERCEPT
     Indication: RHEUMATOID ARTHRITIS
     Route: 058
  5. CAFFEINE. [Concomitant]
     Active Substance: CAFFEINE
     Route: 065
  6. THIAMINE HYDROCHLORIDE. [Concomitant]
     Active Substance: THIAMINE HYDROCHLORIDE
     Route: 065
  7. ACETAMINOPHEN. [Concomitant]
     Active Substance: ACETAMINOPHEN
     Route: 065
  8. ASAPHEN [Concomitant]
     Active Substance: ASPIRIN
     Route: 065
  9. CALCIUM [Concomitant]
     Active Substance: CALCIUM
     Route: 065
  10. CETAPHIL ACNE PRINCIPLES [Concomitant]
     Route: 065
  11. ESTRIOL [Concomitant]
     Active Substance: ESTRIOL
     Route: 065
  12. PHENYLEPHRINE HCL [Concomitant]
     Active Substance: PHENYLEPHRINE HYDROCHLORIDE
     Route: 065
  13. CELEBREX [Concomitant]
     Active Substance: CELECOXIB
     Route: 065
  14. CALCIUM D-PANTOTHENATE [Concomitant]
     Route: 065
  15. LANOLIN. [Concomitant]
     Active Substance: LANOLIN
     Route: 065
  16. ELAVIL [Concomitant]
     Active Substance: AMITRIPTYLINE HYDROCHLORIDE
     Route: 065
  17. LEUCOVORIN. [Concomitant]
     Active Substance: LEUCOVORIN
     Route: 065
  18. ASPIRIN. [Concomitant]
     Active Substance: ASPIRIN
     Route: 065
  19. ERGOCALCIFEROL. [Concomitant]
     Active Substance: ERGOCALCIFEROL
     Route: 065
  20. FENOFIBRATE. [Concomitant]
     Active Substance: FENOFIBRATE
     Route: 065
  21. PREGABALIN. [Concomitant]
     Active Substance: PREGABALIN
     Route: 065
  22. VITAMIN B COMPLEX [Concomitant]
     Active Substance: CYANOCOBALAMIN\DEXPANTHENOL\NIACINAMIDE\PYRIDOXINE HYDROCHLORIDE\RIBOFLAVIN 5^-PHOSPHATE SODIUM\THIAMINE HYDROCHLORIDE\VITAMIN B COMPLEX
     Route: 065
  23. PYRIDOXINE HYDROCHLORIDE. [Concomitant]
     Active Substance: PYRIDOXINE HYDROCHLORIDE
     Route: 065
  24. FOLIC ACID. [Concomitant]
     Active Substance: FOLIC ACID
     Route: 065
  25. NICOTINAMIDE [Concomitant]
     Active Substance: NIACINAMIDE
     Route: 065
  26. RIBOFLAVIN [Concomitant]
     Active Substance: RIBOFLAVIN
     Route: 065
  27. REFRESH LACRI LUBE [Concomitant]
     Route: 065

REACTIONS (7)
  - Osteoarthritis [Not Recovered/Not Resolved]
  - Condition aggravated [Not Recovered/Not Resolved]
  - Dry eye [Not Recovered/Not Resolved]
  - Faeces soft [Not Recovered/Not Resolved]
  - Fatigue [Not Recovered/Not Resolved]
  - Headache [Not Recovered/Not Resolved]
  - Diarrhoea [Not Recovered/Not Resolved]
